FAERS Safety Report 21995235 (Version 2)
Quarter: 2023Q1

REPORT INFORMATION
  Report Type: Spontaneous
  Country: BR (occurrence: BR)
  Receive Date: 20230215
  Receipt Date: 20230303
  Transmission Date: 20230418
  Serious: Yes (Other)
  Sender: FDA-Public Use
  Company Number: BR-TAKEDA-2023TUS016151

PATIENT
  Sex: Female
  Weight: 48 kg

DRUGS (1)
  1. MESALAMINE [Suspect]
     Active Substance: MESALAMINE
     Indication: Colitis
     Dosage: 500 MILLIGRAM, BID
     Route: 065

REACTIONS (4)
  - Haemorrhage [Unknown]
  - Product use issue [Unknown]
  - Symptom recurrence [Unknown]
  - Colitis [Unknown]
